FAERS Safety Report 8536070-9 (Version None)
Quarter: 2012Q3

REPORT INFORMATION
  Report Type: 
  Country: None (occurrence: None)
  Receive Date: 20120725
  Receipt Date: 20120723
  Transmission Date: 20120928
  Serious: Yes (Death, Other)
  Sender: FDA-Public Use
  Company Number: VE-PFIZER INC-2012170904

PATIENT
  Age: 75 Year
  Sex: Male

DRUGS (3)
  1. BI-EUGLUCON [Concomitant]
     Dosage: [GLIBENCLAMIDE 5MG ]/[PHENFORMIN HYDROCHLORIDE 500 MG], UNK
     Route: 048
  2. LIPITOR [Suspect]
     Indication: HYPERCHOLESTEROLAEMIA
     Dosage: 10 MG, 1X/DAY
     Route: 048
     Dates: start: 20040101
  3. GLUCOFAGE [Concomitant]
     Dosage: 500 MG, UNK
     Route: 048

REACTIONS (2)
  - RESPIRATORY ARREST [None]
  - EMPHYSEMA [None]
